FAERS Safety Report 9533006 (Version 2)
Quarter: 2013Q4

REPORT INFORMATION
  Report Type: Report from Study
  Country: US (occurrence: US)
  Receive Date: 20130918
  Receipt Date: 20131011
  Transmission Date: 20140711
  Serious: Yes (Other)
  Sender: FDA-Public Use
  Company Number: US-ABBVIE-13P-163-1147533-00

PATIENT
  Sex: Female

DRUGS (10)
  1. HUMIRA [Suspect]
     Indication: RHEUMATOID ARTHRITIS
     Route: 058
  2. HUMIRA [Suspect]
     Route: 058
  3. METHOTREXATE [Concomitant]
     Indication: RHEUMATOID ARTHRITIS
     Dosage: NO DOSING PROVIDED
  4. PREDNISONE [Concomitant]
     Indication: RHEUMATOID ARTHRITIS
     Dosage: WEANED DOWN TO 5 MG
  5. ARAVA [Concomitant]
     Indication: RHEUMATOID ARTHRITIS
  6. PRILOSEC [Concomitant]
     Indication: IRRITABLE BOWEL SYNDROME
  7. PRILOSEC [Concomitant]
     Indication: GASTROOESOPHAGEAL REFLUX DISEASE
  8. LIBRAX [Concomitant]
     Indication: IRRITABLE BOWEL SYNDROME
  9. LIBRAX [Concomitant]
     Indication: GASTROOESOPHAGEAL REFLUX DISEASE
  10. SYNTHROID [Concomitant]
     Indication: THYROID DISORDER

REACTIONS (13)
  - Neuroma [Not Recovered/Not Resolved]
  - Carpal tunnel syndrome [Unknown]
  - Nerve compression [Unknown]
  - Rheumatoid nodule [Unknown]
  - Drug effect incomplete [Not Recovered/Not Resolved]
  - Pain [Not Recovered/Not Resolved]
  - Inflammation [Not Recovered/Not Resolved]
  - Arthralgia [Unknown]
  - Pain in extremity [Not Recovered/Not Resolved]
  - Injection site pain [Not Recovered/Not Resolved]
  - Injection site extravasation [Not Recovered/Not Resolved]
  - Incorrect dose administered [Not Recovered/Not Resolved]
  - Ankle deformity [Unknown]
